FAERS Safety Report 7325011-8 (Version None)
Quarter: 2011Q1

REPORT INFORMATION
  Report Type: 
  Country: None (occurrence: None)
  Receive Date: 20110301
  Receipt Date: 20110224
  Transmission Date: 20110831
  Serious: Yes (Death)
  Sender: FDA-Public Use
  Company Number: MX-BRISTOL-MYERS SQUIBB COMPANY-15570815

PATIENT
  Age: 57 Year
  Sex: Female

DRUGS (1)
  1. ONGLYZA [Suspect]
     Dates: start: 20100301

REACTIONS (1)
  - MYOCARDIAL INFARCTION [None]
